FAERS Safety Report 16539614 (Version 2)
Quarter: 2019Q3

REPORT INFORMATION
  Report Type: Spontaneous
  Country: DE (occurrence: DE)
  Receive Date: 20190708
  Receipt Date: 20190709
  Transmission Date: 20191004
  Serious: Yes (Congenital Anomaly, Other)
  Sender: FDA-Public Use
  Company Number: DE-MYLANLABS-2019M1063315

PATIENT
  Sex: Female

DRUGS (5)
  1. SODIUM VALPROATE [Concomitant]
     Active Substance: VALPROATE SODIUM
     Indication: EPILEPSY
     Dosage: UNK (REPORTED AS 300-0-500)
     Route: 064
     Dates: start: 20170607
  2. LEVETIRACETAM. [Suspect]
     Active Substance: LEVETIRACETAM
     Dosage: 3000 MILLIGRAM, QD
     Route: 064
     Dates: start: 20171205, end: 201712
  3. LEVETIRACETAM. [Suspect]
     Active Substance: LEVETIRACETAM
     Indication: PRODUCT USED FOR UNKNOWN INDICATION
     Dosage: 1000 MILLIGRAM, BID
     Route: 064
     Dates: start: 20170607, end: 201712
  4. LEVETIRACETAM. [Suspect]
     Active Substance: LEVETIRACETAM
     Dosage: 4000 MG, DAILY (1500-1000-1500)
     Route: 064
     Dates: start: 20171213, end: 2018
  5. LEVETIRACETAM. [Suspect]
     Active Substance: LEVETIRACETAM
     Dosage: 2000 MILLIGRAM, QD
     Route: 064
     Dates: start: 2018, end: 20180101

REACTIONS (2)
  - Foetal exposure during pregnancy [Recovered/Resolved]
  - Anotia [Unknown]

NARRATIVE: CASE EVENT DATE: 20170607
